FAERS Safety Report 8809363 (Version 1)
Quarter: 2012Q4

REPORT INFORMATION
  Report Type: 
  Country: GB (occurrence: GB)
  Receive Date: 20120926
  Receipt Date: 20120926
  Transmission Date: 20130627
  Serious: Yes (Hospitalization)
  Sender: FDA-Public Use
  Company Number: GB-TEVA-359509ISR

PATIENT
  Age: 55 Year
  Sex: Male

DRUGS (1)
  1. SIMVASTATIN [Suspect]
     Indication: BLOOD CHOLESTEROL
     Route: 065

REACTIONS (6)
  - Dizziness [Unknown]
  - Speech disorder [Unknown]
  - Slow speech [Unknown]
  - Product colour issue [Unknown]
  - Product quality issue [Unknown]
  - Medication error [Unknown]
